FAERS Safety Report 17413235 (Version 1)
Quarter: 2020Q1

REPORT INFORMATION
  Report Type: Report from Study
  Country: US (occurrence: US)
  Receive Date: 20200213
  Receipt Date: 20200213
  Transmission Date: 20200409
  Serious: Yes (Other)
  Sender: FDA-Public Use
  Company Number: US-TEVA-2019-US-1159143

PATIENT
  Sex: Male

DRUGS (1)
  1. AUSTEDO [Suspect]
     Active Substance: DEUTETRABENAZINE
     Indication: TARDIVE DYSKINESIA
     Dosage: 48 MILLIGRAM DAILY; TWO 12 MG TABLETS TWICE DAILY
     Dates: start: 20191113

REACTIONS (8)
  - Seizure [Unknown]
  - Tremor [Unknown]
  - Therapeutic response unexpected [Unknown]
  - Essential tremor [Unknown]
  - Fatigue [Unknown]
  - Anxiety [Unknown]
  - Drug ineffective [Unknown]
  - Therapy cessation [Unknown]
